FAERS Safety Report 11473860 (Version 1)
Quarter: 2015Q3

REPORT INFORMATION
  Report Type: Spontaneous
  Country: US (occurrence: US)
  Receive Date: 20150908
  Receipt Date: 20150908
  Transmission Date: 20151125
  Serious: No
  Sender: FDA-Public Use
  Company Number: US-JAZZ-2013-US-000968

PATIENT
  Age: 20 Year
  Sex: Female
  Weight: 49 kg

DRUGS (10)
  1. CLEOCIN PEDIATRIC [Concomitant]
     Active Substance: CLINDAMYCIN PALMITATE HYDROCHLORIDE
     Indication: ACNE
     Route: 061
  2. EYE DROPS [Concomitant]
     Active Substance: TETRAHYDROZOLINE HYDROCHLORIDE
     Indication: DRY EYE
     Dosage: UNK
     Route: 047
  3. ZOFRAN [Concomitant]
     Active Substance: ONDANSETRON HYDROCHLORIDE
     Indication: VOMITING
     Dosage: 4 MG, TID
     Route: 048
  4. XYREM [Suspect]
     Active Substance: SODIUM OXYBATE
     Indication: SOMNOLENCE
     Dosage: 3 G,BID
     Route: 048
     Dates: start: 20130830, end: 201309
  5. XYREM [Suspect]
     Active Substance: SODIUM OXYBATE
     Dosage: 3.75 G,BID
     Route: 048
     Dates: start: 201309, end: 201309
  6. MIRALAX [Concomitant]
     Active Substance: POLYETHYLENE GLYCOL 3350
     Indication: BOWEL MOVEMENT IRREGULARITY
     Dosage: UNK
     Route: 048
  7. XYREM [Suspect]
     Active Substance: SODIUM OXYBATE
     Dosage: 4.5 G,BID
     Route: 048
     Dates: start: 201309, end: 201310
  8. BENZOYL PEROXIDE W/CLINDAMYCIN [Concomitant]
     Indication: ACNE
     Route: 061
  9. XYREM [Suspect]
     Active Substance: SODIUM OXYBATE
     Indication: NARCOLEPSY
     Dosage: 2.25 G, BID
     Route: 048
     Dates: start: 20130819, end: 20130829
  10. XYREM [Suspect]
     Active Substance: SODIUM OXYBATE
     Dosage: 3.5 G, BID
     Route: 048
     Dates: start: 201407

REACTIONS (7)
  - Inappropriate affect [Recovered/Resolved]
  - Crying [Recovered/Resolved]
  - Delusion [Recovered/Resolved]
  - Vomiting [Not Recovered/Not Resolved]
  - Pyrexia [Recovered/Resolved]
  - Feeling abnormal [Recovered/Resolved]
  - Rhinorrhoea [Not Recovered/Not Resolved]

NARRATIVE: CASE EVENT DATE: 2013
